FAERS Safety Report 4851819-4 (Version None)
Quarter: 2005Q4

REPORT INFORMATION
  Report Type: 
  Country: None (occurrence: None)
  Receive Date: 20051209
  Receipt Date: 20051205
  Transmission Date: 20060501
  Serious: Yes (Other)
  Sender: FDA-Public Use
  Company Number: 2005163464

PATIENT
  Sex: Female

DRUGS (2)
  1. BEXTRA [Suspect]
     Indication: PAIN
     Dates: start: 20030801
  2. BEXTRA [Suspect]
     Indication: UPPER LIMB FRACTURE
     Dates: start: 20030801

REACTIONS (3)
  - CARDIAC DISORDER [None]
  - PAIN [None]
  - RASH [None]
